FAERS Safety Report 8543776-4 (Version None)
Quarter: 2012Q3

REPORT INFORMATION
  Report Type: 
  Country: None (occurrence: None)
  Receive Date: 20120727
  Receipt Date: 20120717
  Transmission Date: 20120928
  Serious: No
  Sender: FDA-Public Use
  Company Number: US-009507513-1206USA03825

PATIENT

DRUGS (4)
  1. ZETIA [Suspect]
     Route: 048
  2. PRILOSEC [Concomitant]
  3. ZETIA [Suspect]
     Indication: BLOOD CHOLESTEROL DECREASED
     Dosage: 20 MG, QD
     Route: 048
     Dates: end: 20120619
  4. PROSCAR [Concomitant]
     Route: 048

REACTIONS (1)
  - MYALGIA [None]
